FAERS Safety Report 18903265 (Version 1)
Quarter: 2021Q1

REPORT INFORMATION
  Report Type: Report from Study
  Country: None (occurrence: US)
  Receive Date: 20210216
  Receipt Date: 20210216
  Transmission Date: 20210420
  Serious: Yes (Other)
  Sender: FDA-Public Use
  Company Number: US-ABBVIE-20K-163-3625673-00

PATIENT
  Sex: Female

DRUGS (1)
  1. HUMIRA [Suspect]
     Active Substance: ADALIMUMAB
     Indication: RHEUMATOID ARTHRITIS
     Route: 058

REACTIONS (8)
  - Fall [Recovering/Resolving]
  - Nerve injury [Recovering/Resolving]
  - Road traffic accident [Recovering/Resolving]
  - Rib fracture [Recovering/Resolving]
  - Limb injury [Recovering/Resolving]
  - Cerebral haemorrhage [Recovering/Resolving]
  - Head injury [Recovering/Resolving]
  - Cardiac failure congestive [Recovering/Resolving]
